FAERS Safety Report 18128324 (Version 1)
Quarter: 2020Q3

REPORT INFORMATION
  Report Type: Spontaneous
  Country: US (occurrence: US)
  Receive Date: 20200807
  Receipt Date: 20200807
  Transmission Date: 20201103
  Serious: No
  Sender: FDA-Public Use
  Company Number: None

PATIENT
  Age: 37 Year
  Sex: Female
  Weight: 59.4 kg

DRUGS (2)
  1. REMDESIVIR. [Concomitant]
     Active Substance: REMDESIVIR
     Dates: start: 20200804, end: 20200805
  2. REMDESIVIR. [Suspect]
     Active Substance: REMDESIVIR
     Indication: COVID-19
     Route: 040
     Dates: start: 20200804, end: 20200805

REACTIONS (1)
  - Liver function test increased [None]

NARRATIVE: CASE EVENT DATE: 20200804
